FAERS Safety Report 9254959 (Version 1)
Quarter: 2013Q2

REPORT INFORMATION
  Report Type: Spontaneous
  Country: BR (occurrence: BR)
  Receive Date: 20130425
  Receipt Date: 20130425
  Transmission Date: 20140414
  Serious: Yes (Other)
  Sender: FDA-Public Use
  Company Number: BR-PFIZER INC-2013126740

PATIENT
  Age: 75 Year
  Sex: Female

DRUGS (4)
  1. LIPITOR [Suspect]
     Dosage: 80 MG, DAILY
     Route: 048
     Dates: start: 2009
  2. COZAAR [Concomitant]
     Indication: HYPERTENSION
     Dosage: 50 MG, UNK
  3. PLAVIX [Concomitant]
     Indication: ANTICOAGULANT THERAPY
     Dosage: 75 MG, UNK
  4. PURAN T4 [Concomitant]
     Indication: THYROID DISORDER
     Dosage: 50 MG, UNK

REACTIONS (1)
  - Transient global amnesia [Unknown]
